FAERS Safety Report 7400293 (Version 3)
Quarter: 2013Q4

REPORT INFORMATION
  Report Type: Report from Study
  Country: JP (occurrence: JP)
  Receive Date: 20100526
  Receipt Date: 20131023
  Transmission Date: 20140711
  Serious: Yes (Death, Hospitalization, Other)
  Sender: FDA-Public Use
  Company Number: JP-BRISTOL-MYERS SQUIBB COMPANY-15116932

PATIENT
  Age: 85 Year
  Sex: Female
  Weight: 36.2 kg

DRUGS (14)
  1. SPRYCEL [Suspect]
     Indication: CHRONIC MYELOID LEUKAEMIA
     Dosage: 15MAR10-17MAR10,100MG?23MAR10-29MAR10,50MG?31MAR10-02APR10,50MG
     Route: 048
     Dates: start: 20100315, end: 20100402
  2. CEFOPERAZONE SODIUM + SULBACTAM SODIUM [Suspect]
     Route: 042
     Dates: end: 20100315
  3. ZYLORIC [Concomitant]
     Dates: end: 20100405
  4. TEPRENONE [Concomitant]
     Dosage: CAPS
     Route: 048
     Dates: end: 20100405
  5. ALLEGRA [Concomitant]
     Dosage: TABS
     Route: 048
     Dates: end: 20100405
  6. LASIX [Concomitant]
     Dosage: 480MG/D?3-5MAY10
     Route: 048
     Dates: end: 20100405
  7. VASOLAN [Concomitant]
     Dosage: TABS
     Route: 048
  8. KALIMATE [Concomitant]
     Dosage: POWDER
     Route: 048
     Dates: end: 20100405
  9. MICARDIS [Concomitant]
     Dosage: TABS
     Route: 048
  10. PREDOHAN [Concomitant]
     Route: 048
     Dates: end: 20100405
  11. MAGLAX [Concomitant]
     Dosage: UNK-19MAR2010?20MAR10-05APR10
     Route: 048
     Dates: end: 20100405
  12. CRAVIT [Concomitant]
     Dosage: SOL,EYE,FEW DROPS AT ONCE,FEW TIMES A DAY
     Dates: end: 20100405
  13. ESPO [Concomitant]
     Dosage: 1DF=6000 UNITS,INJ
     Route: 058
  14. NORMAL SALINE [Concomitant]
     Dates: end: 20100315

REACTIONS (4)
  - Renal failure acute [Fatal]
  - Pneumonia aspiration [Fatal]
  - Shock haemorrhagic [Recovered/Resolved]
  - Hyperkalaemia [Recovered/Resolved]
